FAERS Safety Report 25306051 (Version 1)
Quarter: 2025Q2

REPORT INFORMATION
  Report Type: Spontaneous
  Country: US (occurrence: None)
  Receive Date: 20250513
  Receipt Date: 20250513
  Transmission Date: 20250716
  Serious: No
  Sender: FDA-CTU
  Company Number: None

PATIENT
  Age: 64 Year
  Sex: Male
  Weight: 90.3 kg

DRUGS (1)
  1. TEMOZOLOMIDE [Suspect]
     Active Substance: TEMOZOLOMIDE
     Dates: end: 20250422

REACTIONS (9)
  - Nausea [None]
  - Diarrhoea [None]
  - Headache [None]
  - Swelling [None]
  - Cerebrospinal fluid leakage [None]
  - Infection [None]
  - Pulmonary embolism [None]
  - Deep vein thrombosis [None]
  - Vomiting [None]

NARRATIVE: CASE EVENT DATE: 20250424
